FAERS Safety Report 4277588-7 (Version None)
Quarter: 2004Q1

REPORT INFORMATION
  Report Type: 
  Country: None (occurrence: None)
  Receive Date: 20040121
  Receipt Date: 20040121
  Transmission Date: 20041129
  Serious: Yes (Hospitalization)
  Sender: FDA-Public Use
  Company Number: None

PATIENT
  Sex: Male
  Weight: 30 kg

DRUGS (5)
  1. THIOGUANINE [Suspect]
     Indication: ACUTE LYMPHOCYTIC LEUKAEMIA
     Dosage: 60MG/M2 Q DAY
     Dates: start: 20031016, end: 20031024
  2. THIOGUANINE [Suspect]
     Indication: NEOPLASM RECURRENCE
     Dosage: 60MG/M2 Q DAY
     Dates: start: 20031016, end: 20031024
  3. CEFEPIME [Concomitant]
  4. NAFCILLIN SODIUM [Concomitant]
  5. VITAMIN K TAB [Concomitant]

REACTIONS (6)
  - ASCITES [None]
  - HEPATOMEGALY [None]
  - NEUTROPENIA [None]
  - PLEURAL EFFUSION [None]
  - PYREXIA [None]
  - VENOOCCLUSIVE DISEASE [None]
